FAERS Safety Report 10490211 (Version 1)
Quarter: 2014Q4

REPORT INFORMATION
  Report Type: Other
  Country: GB (occurrence: GB)
  Receive Date: 20141002
  Receipt Date: 20141002
  Transmission Date: 20150528
  Serious: Yes (Life-Threatening)
  Sender: FDA-Public Use
  Company Number: GB-MYLANLABS-2014M1005405

PATIENT

DRUGS (12)
  1. FULTIUM-D3 [Concomitant]
  2. THIAMINE [Concomitant]
     Active Substance: THIAMINE
  3. CHLORPHENAMINE [Concomitant]
     Active Substance: CHLORPHENIRAMINE MALEATE
     Indication: PRURITUS
     Dosage: UNK
     Dates: end: 20140820
  4. VITAMIN B COMPLEX STRONG [Concomitant]
  5. HALOPERIDOL DECANOATE. [Concomitant]
     Active Substance: HALOPERIDOL DECANOATE
     Dosage: UNK
  6. LAMOTRIGINE. [Suspect]
     Active Substance: LAMOTRIGINE
     Indication: MOOD SWINGS
     Dosage: 100 MG, BID
     Route: 048
     Dates: start: 20140801, end: 20140905
  7. CARBAMAZEPINE. [Concomitant]
     Active Substance: CARBAMAZEPINE
     Dosage: UNK
     Dates: end: 20140820
  8. OMEPRAZOLE. [Concomitant]
     Active Substance: OMEPRAZOLE
  9. PROCYCLIDINE [Concomitant]
     Active Substance: PROCYCLIDINE
  10. HALOPERIDOL. [Concomitant]
     Active Substance: HALOPERIDOL
     Dosage: UNK
  11. LORAZEPAM. [Concomitant]
     Active Substance: LORAZEPAM
     Dosage: UNK
  12. PROMAZINE [Concomitant]
     Active Substance: PROMAZINE

REACTIONS (7)
  - Drug titration error [Unknown]
  - Flushing [Unknown]
  - Tremor [Unknown]
  - Rash pruritic [Recovering/Resolving]
  - Rash macular [Recovering/Resolving]
  - Throat tightness [Recovered/Resolved]
  - Periorbital oedema [Recovered/Resolved]

NARRATIVE: CASE EVENT DATE: 20140901
